FAERS Safety Report 5134183-5 (Version None)
Quarter: 2006Q4

REPORT INFORMATION
  Report Type: 
  Country: None (occurrence: None)
  Receive Date: 20061024
  Receipt Date: 20061020
  Transmission Date: 20070319
  Serious: Yes (Hospitalization)
  Sender: FDA-Public Use
  Company Number: MX-BRISTOL-MYERS SQUIBB COMPANY-13551106

PATIENT
  Sex: Male

DRUGS (1)
  1. TEQUIN [Suspect]
     Indication: LOWER RESPIRATORY TRACT INFECTION

REACTIONS (1)
  - HYPOGLYCAEMIA [None]
